FAERS Safety Report 24394599 (Version 1)
Quarter: 2024Q4

REPORT INFORMATION
  Report Type: Spontaneous
  Country: FR (occurrence: None)
  Receive Date: 20241004
  Receipt Date: 20241004
  Transmission Date: 20250114
  Serious: Yes (Other)
  Sender: ORION
  Company Number: None

PATIENT
  Age: 50 Year
  Sex: Female
  Weight: 135 kg

DRUGS (14)
  1. METHOTREXATE [Interacting]
     Active Substance: METHOTREXATE
     Indication: Rheumatoid arthritis
  2. PAZOPANIB [Interacting]
     Active Substance: PAZOPANIB
     Dosage: DOSE ESCALATION UP TO 1200 MG/DAY, FRACTIONING AND TAKING THE MED WITH FOOD
  3. PAZOPANIB [Interacting]
     Active Substance: PAZOPANIB
  4. PAZOPANIB [Interacting]
     Active Substance: PAZOPANIB
  5. PAZOPANIB [Interacting]
     Active Substance: PAZOPANIB
     Dosage: WITH FOOD
  6. RAMIPRIL [Interacting]
     Active Substance: RAMIPRIL
     Indication: Hypertension
  7. ALTHIAZIDE\SPIRONOLACTONE [Interacting]
     Active Substance: ALTHIAZIDE\SPIRONOLACTONE
     Indication: Hypertension
  8. OMEPRAZOLE [Interacting]
     Active Substance: OMEPRAZOLE
     Indication: Gastrooesophageal reflux disease
  9. FOLIC ACID [Concomitant]
     Active Substance: FOLIC ACID
     Indication: Vitamin supplementation
  10. TINZAPARIN [Concomitant]
     Active Substance: TINZAPARIN
  11. LEVOTHYROXINE [Concomitant]
     Active Substance: LEVOTHYROXINE
     Indication: Hypothyroidism
  12. CHOLECALCIFEROL [Concomitant]
     Active Substance: CHOLECALCIFEROL
     Indication: Vitamin supplementation
  13. PROPRANOLOL [Concomitant]
     Active Substance: PROPRANOLOL HYDROCHLORIDE
     Indication: Hypertension
  14. DESLORATADINE [Concomitant]
     Active Substance: DESLORATADINE
     Indication: Product used for unknown indication

REACTIONS (3)
  - Drug interaction [Unknown]
  - Haematotoxicity [Unknown]
  - Hepatic function abnormal [Unknown]
